FAERS Safety Report 6124492-5 (Version None)
Quarter: 2009Q1

REPORT INFORMATION
  Report Type: 
  Country: None (occurrence: None)
  Receive Date: 20090317
  Receipt Date: 20090317
  Transmission Date: 20090719
  Serious: Yes (Other)
  Sender: FDA-Public Use
  Company Number: None

PATIENT
  Sex: Female
  Weight: 85.45 kg

DRUGS (7)
  1. SIMVASTATIN [Suspect]
     Dosage: 20MG TABLET 20 MG QHS ORAL
     Route: 048
     Dates: start: 20081021, end: 20090316
  2. ATENOLOL [Concomitant]
  3. DARVOCET (PROPOXYPHENE NAP/ACETAMINOPHEN) [Concomitant]
  4. FLUTICASONE PROPIONATE [Concomitant]
  5. IBUPROFEN TABLETS [Concomitant]
  6. LISINOPRIL [Concomitant]
  7. LEVOTHYROXINE SODIUM [Concomitant]

REACTIONS (2)
  - LIVER FUNCTION TEST ABNORMAL [None]
  - MYALGIA [None]
